FAERS Safety Report 9862437 (Version 1)
Quarter: 2014Q1

REPORT INFORMATION
  Report Type: Spontaneous
  Country: US (occurrence: US)
  Receive Date: 20140203
  Receipt Date: 20140203
  Transmission Date: 20141002
  Serious: No
  Sender: FDA-Public Use
  Company Number: US-BAYER-2014-015700

PATIENT
  Age: 77 Year
  Sex: Male
  Weight: 79.37 kg

DRUGS (2)
  1. ALEVE TABLET [Suspect]
     Indication: TOOTHACHE
     Dosage: 1 DF, ONCE
     Route: 048
     Dates: start: 20140122
  2. LEVOTHYROXINE [Concomitant]

REACTIONS (2)
  - Swelling face [Not Recovered/Not Resolved]
  - Oedema mouth [Not Recovered/Not Resolved]
